FAERS Safety Report 16211452 (Version 2)
Quarter: 2019Q3

REPORT INFORMATION
  Report Type: Not Available
  Country: US (occurrence: US)
  Receive Date: 20190418
  Receipt Date: 20190828
  Transmission Date: 20191004
  Serious: No
  Sender: FDA-Public Use
  Company Number: US-NEUROCRINE BIOSCIENCES INC.-2019NBI00952

PATIENT
  Age: 52 Year
  Sex: Female

DRUGS (5)
  1. VRAYLAR [Concomitant]
     Active Substance: CARIPRAZINE
     Indication: MENTAL DISORDER
     Dosage: 3 MG AT BEDTIME (HS)
     Route: 048
     Dates: start: 201703
  2. TRAZODONE [Concomitant]
     Active Substance: TRAZODONE HYDROCHLORIDE
     Indication: POST-TRAUMATIC STRESS DISORDER
     Dosage: 5 MG AT BEDTIME (HS)
     Route: 048
     Dates: start: 201808
  3. PRAZOSIN. [Concomitant]
     Active Substance: PRAZOSIN
     Indication: POST-TRAUMATIC STRESS DISORDER
     Dosage: 2 MG AT BEDTIME (HS)
     Route: 048
     Dates: start: 201608
  4. INGREZZA [Suspect]
     Active Substance: VALBENAZINE
     Indication: TARDIVE DYSKINESIA
     Route: 048
     Dates: start: 20190304, end: 20190404
  5. CELEXA [Concomitant]
     Active Substance: CITALOPRAM HYDROBROMIDE
     Indication: POST-TRAUMATIC STRESS DISORDER
     Dosage: 20 MG AT BEDTIME (HS)
     Route: 048
     Dates: start: 201608

REACTIONS (2)
  - Feeling abnormal [Recovered/Resolved]
  - Dyskinesia [Recovered/Resolved]

NARRATIVE: CASE EVENT DATE: 201904
